FAERS Safety Report 12637080 (Version 1)
Quarter: 2016Q3

REPORT INFORMATION
  Report Type: Spontaneous
  Country: US (occurrence: US)
  Receive Date: 20160809
  Receipt Date: 20160809
  Transmission Date: 20161109
  Serious: No
  Sender: FDA-Public Use
  Company Number: US-BEH-2015052364

PATIENT
  Sex: Female
  Weight: 85 kg

DRUGS (27)
  1. CRANBERRY. [Concomitant]
     Active Substance: CRANBERRY
  2. VITAMIN D2 [Concomitant]
     Active Substance: ERGOCALCIFEROL
  3. POTASSIUM [Concomitant]
     Active Substance: POTASSIUM
  4. PRIVIGEN [Suspect]
     Active Substance: HUMAN IMMUNOGLOBULIN G
     Indication: IMMUNODEFICIENCY COMMON VARIABLE
     Dosage: 10 GM VIALS
     Route: 042
  5. ACETAMINOPHEN. [Concomitant]
     Active Substance: ACETAMINOPHEN
  6. SODIUM CHLORIDE. [Concomitant]
     Active Substance: SODIUM CHLORIDE
  7. TRAMADOL. [Concomitant]
     Active Substance: TRAMADOL
  8. SYNTHROID [Concomitant]
     Active Substance: LEVOTHYROXINE SODIUM
  9. FLINTSTONES IRON [Concomitant]
  10. EPIPEN [Concomitant]
     Active Substance: EPINEPHRINE
     Indication: ANAPHYLACTIC REACTION
  11. KEFLEX [Concomitant]
     Active Substance: CEPHALEXIN
  12. DIPHENHYDRAMINE. [Concomitant]
     Active Substance: DIPHENHYDRAMINE
  13. FLOMAX [Concomitant]
     Active Substance: TAMSULOSIN HYDROCHLORIDE
  14. HEPARIN [Concomitant]
     Active Substance: HEPARIN SODIUM
  15. FLONASE [Concomitant]
     Active Substance: FLUTICASONE PROPIONATE
  16. CYANOCOBALAMIN. [Concomitant]
     Active Substance: CYANOCOBALAMIN
  17. SINGULAIR [Concomitant]
     Active Substance: MONTELUKAST SODIUM
  18. VENTOLIN [Concomitant]
     Active Substance: ALBUTEROL SULFATE
  19. PRILOSEC [Concomitant]
     Active Substance: OMEPRAZOLE MAGNESIUM
  20. PRIVIGEN [Suspect]
     Active Substance: HUMAN IMMUNOGLOBULIN G
     Dosage: 5 GM VIALS
     Route: 042
  21. CRESTOR [Concomitant]
     Active Substance: ROSUVASTATIN CALCIUM
  22. GABAPENTIN. [Concomitant]
     Active Substance: GABAPENTIN
  23. CEPHALEXIN. [Concomitant]
     Active Substance: CEPHALEXIN
  24. TEGRETOL [Concomitant]
     Active Substance: CARBAMAZEPINE
  25. LASIX [Concomitant]
     Active Substance: FUROSEMIDE
  26. METFORMIN [Concomitant]
     Active Substance: METFORMIN HYDROCHLORIDE
  27. FENOFIBRATE. [Concomitant]
     Active Substance: FENOFIBRATE

REACTIONS (1)
  - Arthropod bite [Unknown]
